FAERS Safety Report 25413717 (Version 1)
Quarter: 2025Q2

REPORT INFORMATION
  Report Type: Spontaneous
  Country: GB (occurrence: GB)
  Receive Date: 20250609
  Receipt Date: 20250609
  Transmission Date: 20250716
  Serious: Yes (Other)
  Sender: ABBVIE
  Company Number: None

PATIENT
  Age: 38 Year
  Sex: Female
  Weight: 68 kg

DRUGS (1)
  1. RINVOQ [Suspect]
     Active Substance: UPADACITINIB
     Indication: Crohn^s disease
     Dosage: 30MG ONCE A DAY AT NIGHT
     Route: 048
     Dates: start: 20230601

REACTIONS (6)
  - Eye swelling [Not Recovered/Not Resolved]
  - Urticaria [Not Recovered/Not Resolved]
  - Rash pruritic [Not Recovered/Not Resolved]
  - Presyncope [Recovered/Resolved with Sequelae]
  - Acne [Unknown]
  - Swelling face [Unknown]

NARRATIVE: CASE EVENT DATE: 20230601
